FAERS Safety Report 7912391-5 (Version None)
Quarter: 2011Q4

REPORT INFORMATION
  Report Type: 
  Country: None (occurrence: None)
  Receive Date: 20111114
  Receipt Date: 20111103
  Transmission Date: 20120403
  Serious: Yes (Hospitalization)
  Sender: FDA-Public Use
  Company Number: US-BAYER-2010-004846

PATIENT
  Age: 22 Year
  Sex: Female
  Weight: 81 kg

DRUGS (7)
  1. PREDNISONE [Concomitant]
  2. YAZ [Suspect]
     Indication: ACNE
  3. OXYCODONE HCL [Concomitant]
     Dosage: UNK UNK, PRN
  4. UNCODEABLE ^UNCLASSIFIABLE^ [Concomitant]
  5. YAZ [Suspect]
     Indication: PREMENSTRUAL SYNDROME
     Dosage: UNK
     Dates: start: 20070401, end: 20071214
  6. YAZ [Suspect]
     Indication: MENSTRUAL DISORDER
  7. AMBIEN [Concomitant]

REACTIONS (3)
  - TRANSVERSE SINUS THROMBOSIS [None]
  - INJURY [None]
  - PAIN [None]
